FAERS Safety Report 6081410-6 (Version None)
Quarter: 2009Q1

REPORT INFORMATION
  Report Type: 
  Country: None (occurrence: None)
  Receive Date: 20090218
  Receipt Date: 20090213
  Transmission Date: 20090719
  Serious: Yes (Hospitalization, Other)
  Sender: FDA-Public Use
  Company Number: BE-BRISTOL-MYERS SQUIBB COMPANY-14465140

PATIENT
  Age: 56 Year
  Sex: Male
  Weight: 54 kg

DRUGS (8)
  1. CETUXIMAB [Suspect]
     Indication: HEAD AND NECK CANCER
     Dosage: FIRST INFUSION-09APR08;RECENT INFUSION ON 26AUG08
     Route: 042
     Dates: start: 20080409, end: 20080826
  2. CISPLATIN [Suspect]
     Indication: HEAD AND NECK CANCER
     Dosage: FIRST INFUSION-14JUL08;RECENT INFUSION ON 12AUG08
     Route: 042
     Dates: start: 20080714, end: 20080812
  3. DOCETAXEL [Suspect]
     Indication: HEAD AND NECK CANCER
     Dosage: FIRST INFUSION-09APR08;RECENT INFUSION ON 11JUN08
     Route: 042
     Dates: start: 20080409, end: 20080611
  4. FLUOROURACIL [Suspect]
     Indication: HEAD AND NECK CANCER
     Dosage: FIRST INFUSION-09APR08;RECENT INFUSION ON 11JUN08
     Route: 042
     Dates: start: 20080409, end: 20080611
  5. RADIOTHERAPY [Suspect]
     Indication: HEAD AND NECK CANCER
     Dosage: 1 DOSAGE FORM = 2GY. MOST RECENT APPL ON 29-AUG-08
     Dates: start: 20080714, end: 20080829
  6. MOUTHWASH [Concomitant]
     Indication: STOMATITIS
     Dates: start: 20080418
  7. LAXOBERAL [Concomitant]
     Indication: CONSTIPATION
     Route: 048
     Dates: start: 20080910, end: 20081024
  8. OMEPRAZOLE [Concomitant]
     Dates: start: 20081003

REACTIONS (1)
  - DYSPHAGIA [None]
